FAERS Safety Report 5678360-3 (Version None)
Quarter: 2008Q1

REPORT INFORMATION
  Report Type: 
  Country: None (occurrence: None)
  Receive Date: 20080320
  Receipt Date: 20080304
  Transmission Date: 20080703
  Serious: Yes (Death)
  Sender: FDA-Public Use
  Company Number: 015#3#2008-00004

PATIENT
  Age: 83 Year
  Sex: Female

DRUGS (3)
  1. NEUPRO [Suspect]
     Indication: PARKINSON'S DISEASE
     Dosage: 2 MG/24H TRANSDERMAL
     Route: 062
     Dates: start: 20070915, end: 20071015
  2. INDAPAMIDE [Suspect]
     Dosage: ORAL
     Route: 048
     Dates: start: 20060101
  3. LORAZEPAM [Suspect]
     Dosage: ORAL
     Route: 048
     Dates: start: 20060101

REACTIONS (1)
  - BONE MARROW FAILURE [None]
